FAERS Safety Report 9100608 (Version 1)
Quarter: 2013Q1

REPORT INFORMATION
  Report Type: Spontaneous
  Country: US (occurrence: None)
  Receive Date: 20130220
  Receipt Date: 20130220
  Transmission Date: 20140127
  Serious: Yes (Life-Threatening, Hospitalization, Disabling)
  Sender: FDA-Public Use
  Company Number: None

PATIENT
  Age: 67 Year
  Sex: Male
  Weight: 85.5 kg

DRUGS (4)
  1. PRASUGREL [Suspect]
     Indication: ACUTE MYOCARDIAL INFARCTION
     Route: 048
     Dates: start: 20130205, end: 20130207
  2. PRASUGREL [Suspect]
     Indication: STENT PLACEMENT
     Route: 048
     Dates: start: 20130205, end: 20130207
  3. ASPIRIN [Suspect]
     Indication: ACUTE MYOCARDIAL INFARCTION
     Route: 048
     Dates: start: 20130205, end: 20130207
  4. ASPIRIN [Suspect]
     Indication: STENT PLACEMENT
     Route: 048
     Dates: start: 20130205, end: 20130207

REACTIONS (2)
  - Cerebral haemorrhage [None]
  - Brain oedema [None]
